FAERS Safety Report 7635036-0 (Version None)
Quarter: 2011Q3

REPORT INFORMATION
  Report Type: 
  Country: None (occurrence: None)
  Receive Date: 20110726
  Receipt Date: 20110712
  Transmission Date: 20111222
  Serious: Yes (Other)
  Sender: FDA-Public Use
  Company Number: KR-BAYER-2011-049852

PATIENT
  Age: 62 Year
  Sex: Male
  Weight: 67 kg

DRUGS (84)
  1. MEK INHIBITOR (DIHYDROXYPROP-DIFLU-METHOXYPHEN-CYCLOPROPA-SULFAMI) [Suspect]
     Dosage: 50 MG, BID
     Route: 048
     Dates: start: 20110115, end: 20110120
  2. MEK INHIBITOR (DIHYDROXYPROP-DIFLU-METHOXYPHEN-CYCLOPROPA-SULFAMI) [Suspect]
     Dosage: 80 MG, QD(50 MG AM 30 MG PM)
     Route: 048
     Dates: start: 20110422, end: 20110422
  3. SORAFENIB (RAF KINASE INHIBITOR) [Suspect]
     Dosage: 600 MG, QD(200MG AM/ 400MG PM)
     Route: 048
     Dates: start: 20110128, end: 20110206
  4. SORAFENIB (RAF KINASE INHIBITOR) [Suspect]
     Dosage: 400 MG, QD (PM)
     Route: 048
     Dates: start: 20110217, end: 20110217
  5. SORAFENIB (RAF KINASE INHIBITOR) [Suspect]
     Dosage: 600 MG, QD (200 MGAM/400 MG PM)
     Route: 048
     Dates: start: 20110219, end: 20110309
  6. LIPID EMULSION [Concomitant]
     Indication: DECREASED APPETITE
     Dosage: 250 ML, QD
     Route: 042
     Dates: start: 20110310, end: 20110310
  7. HEPATAMINE [Concomitant]
     Indication: PARENTERAL NUTRITION
     Dosage: 500 MG, QD
     Route: 042
     Dates: start: 20110318, end: 20110318
  8. MEK INHIBITOR (DIHYDROXYPROP-DIFLU-METHOXYPHEN-CYCLOPROPA-SULFAMI) [Suspect]
     Dosage: 50 MG, QD
     Route: 048
     Dates: start: 20110404, end: 20110404
  9. MEK INHIBITOR (DIHYDROXYPROP-DIFLU-METHOXYPHEN-CYCLOPROPA-SULFAMI) [Suspect]
     Dosage: 50 MG, BID
     Route: 048
     Dates: start: 20110405, end: 20110418
  10. MEK INHIBITOR (DIHYDROXYPROP-DIFLU-METHOXYPHEN-CYCLOPROPA-SULFAMI) [Suspect]
     Dosage: 30 MG, BID
     Route: 048
     Dates: start: 20110513, end: 20110528
  11. SORAFENIB (RAF KINASE INHIBITOR) [Suspect]
     Dosage: 600 MG, QD(200 MG AM/ 400 MG PM)
     Route: 048
     Dates: start: 20110319, end: 20110331
  12. SORAFENIB (RAF KINASE INHIBITOR) [Suspect]
     Dosage: 600 MG, QD(200 MG AM/400 MG PM)
     Route: 048
     Dates: start: 20110420, end: 20110421
  13. MAGNESIUM OXIDE [Concomitant]
     Indication: CONSTIPATION PROPHYLAXIS
     Dosage: 500 MG, BID
     Route: 048
     Dates: start: 20101130
  14. HEXAMIDINE [Concomitant]
     Dosage: 100 ML, QD
     Dates: start: 20110422, end: 20110430
  15. FESTAL [Concomitant]
     Indication: VOMITING
     Dosage: 1 TBSPN TID
     Route: 048
     Dates: start: 20110117, end: 20110309
  16. LACTULOSE [Concomitant]
     Indication: CONSTIPATION PROPHYLAXIS
     Dosage: 20 ML, TID
     Route: 048
     Dates: start: 20110218, end: 20110310
  17. MEK INHIBITOR (DIHYDROXYPROP-DIFLU-METHOXYPHEN-CYCLOPROPA-SULFAMI) [Suspect]
     Dosage: 50 MG, QD
     Route: 048
     Dates: start: 20110217, end: 20110217
  18. MEK INHIBITOR (DIHYDROXYPROP-DIFLU-METHOXYPHEN-CYCLOPROPA-SULFAMI) [Suspect]
     Dosage: 50 MG, QD
     Route: 048
     Dates: start: 20110318, end: 20110318
  19. MEK INHIBITOR (DIHYDROXYPROP-DIFLU-METHOXYPHEN-CYCLOPROPA-SULFAMI) [Suspect]
     Dosage: 30 MG, QD (PM)
     Route: 048
     Dates: start: 20110602, end: 20110602
  20. SORAFENIB (RAF KINASE INHIBITOR) [Suspect]
     Dosage: 600 MG, QD (200 MG AM/ 400 MG PM)
     Route: 048
     Dates: start: 20110405, end: 20110418
  21. THIAMINE [Concomitant]
     Indication: HEPATITIS B
     Dosage: 20 MG, BID
     Route: 048
     Dates: start: 20100527
  22. ANALGESICS [Concomitant]
     Indication: ARTHRALGIA
     Dosage: 5 MG, PRN
     Route: 048
     Dates: start: 20100527, end: 20110309
  23. MYDRIN P [Concomitant]
     Dosage: 1 ML, QD
     Route: 061
     Dates: start: 20110218, end: 20110218
  24. HEXAMIDINE [Concomitant]
     Indication: STOMATITIS
     Dosage: 100 ML, PRN
     Dates: start: 20110117, end: 20110121
  25. TRIAMCINOLONE [Concomitant]
     Dosage: 10 G, PRN
     Route: 061
     Dates: start: 20110422
  26. MEGACE [Concomitant]
     Indication: PROPHYLAXIS
     Dosage: 10 ML, QD
     Route: 048
     Dates: start: 20101213, end: 20101219
  27. MEGACE [Concomitant]
     Dosage: 10 ML, QD
     Route: 048
     Dates: start: 20110512, end: 20110518
  28. MEK INHIBITOR (DIHYDROXYPROP-DIFLU-METHOXYPHEN-CYCLOPROPA-SULFAMI) [Suspect]
     Dosage: 30 MG, BID
     Route: 048
     Dates: start: 20110423, end: 20110511
  29. SORAFENIB (RAF KINASE INHIBITOR) [Suspect]
     Dosage: 400 MG, QD (PM)
     Route: 048
     Dates: start: 20110128, end: 20110128
  30. SORAFENIB (RAF KINASE INHIBITOR) [Suspect]
     Dosage: 400 MG, QD(PM)
     Route: 048
     Dates: start: 20110318, end: 20110318
  31. AMARYL [Concomitant]
     Indication: DIABETES MELLITUS
     Dosage: 1 TAB BID
     Dates: start: 20101023
  32. DURAGESIC-100 [Concomitant]
     Indication: ARTHRALGIA
     Dosage: 50 ?G, QOD
     Route: 062
     Dates: start: 20100623
  33. METOCLOPRAMIDE [Concomitant]
     Dosage: 2.5 MG, TID
     Route: 048
     Dates: start: 20110422
  34. TRIAMCINOLONE [Concomitant]
     Indication: STOMATITIS
     Dosage: 1ML
     Route: 061
     Dates: start: 20110121, end: 20110309
  35. OPTIRAY 300 [Concomitant]
     Indication: COMPUTERISED TOMOGRAM
     Dosage: 100 ML, QD
     Route: 042
     Dates: start: 20101228, end: 20101228
  36. BACTROBAN [Concomitant]
     Indication: EXCORIATION
     Dosage: 10 G, PRN
     Route: 061
     Dates: start: 20110211, end: 20110309
  37. HEPATAMINE [Concomitant]
     Dosage: 500 MG, QD
     Route: 042
     Dates: start: 20110404, end: 20110404
  38. ULTRAVIST 150 [Concomitant]
     Indication: COMPUTERISED TOMOGRAM
     Dosage: 500 ML, QD
     Route: 042
     Dates: start: 20110404, end: 20110404
  39. MEK INHIBITOR (DIHYDROXYPROP-DIFLU-METHOXYPHEN-CYCLOPROPA-SULFAMI) [Suspect]
     Indication: HEPATIC NEOPLASM MALIGNANT
     Dosage: 50 MG, BID
     Route: 048
     Dates: start: 20110107, end: 20110113
  40. SORAFENIB (RAF KINASE INHIBITOR) [Suspect]
     Dosage: 600 MG, QD(200MG AM/ 400 MG PM)
     Route: 048
     Dates: start: 20110115, end: 20110120
  41. MEGACE [Concomitant]
     Dosage: 10 ML, QD
     Route: 048
     Dates: start: 20110401, end: 20110407
  42. CONTRAST MEDIA [Concomitant]
     Dosage: 10 ML, QD
     Route: 042
     Dates: start: 20110401, end: 20110401
  43. LIPID EMULSION [Concomitant]
     Dosage: 250 ML, QD
     Dates: start: 20110318, end: 20110318
  44. MEK INHIBITOR (DIHYDROXYPROP-DIFLU-METHOXYPHEN-CYCLOPROPA-SULFAMI) [Suspect]
     Dosage: 50 MG, BID
     Route: 048
     Dates: start: 20110129, end: 20110206
  45. MEK INHIBITOR (DIHYDROXYPROP-DIFLU-METHOXYPHEN-CYCLOPROPA-SULFAMI) [Suspect]
     Dosage: 50 MG, BID
     Route: 048
     Dates: start: 20110420, end: 20110421
  46. MEK INHIBITOR (DIHYDROXYPROP-DIFLU-METHOXYPHEN-CYCLOPROPA-SULFAMI) [Suspect]
     Dosage: 30 MG, QD(PM)
     Route: 048
     Dates: start: 20110512, end: 20110512
  47. SORAFENIB (RAF KINASE INHIBITOR) [Suspect]
     Indication: HEPATIC NEOPLASM MALIGNANT
     Dosage: 600 MG, QD(200MG AM/400MG PM)
     Route: 048
     Dates: start: 20110107, end: 20110113
  48. SORAFENIB (RAF KINASE INHIBITOR) [Suspect]
     Dosage: 400 MG, QD (PM)
     Route: 048
     Dates: start: 20110404, end: 20110404
  49. SORAFENIB (RAF KINASE INHIBITOR) [Suspect]
     Dosage: 600 MG, QD(200 MG AM/400 MG PM)
     Route: 048
     Dates: start: 20110513, end: 20110528
  50. URSODIOL [Concomitant]
     Indication: HEPATITIS B
     Dosage: 200 MG, BID
     Route: 048
     Dates: start: 20100527
  51. ULTRACET [Concomitant]
     Indication: ARTHRALGIA
     Dosage: 1 TAB TID
     Dates: start: 20101015, end: 20110120
  52. METOCLOPRAMIDE [Concomitant]
     Indication: VOMITING
     Dosage: 2.5 MG, TID
     Route: 048
     Dates: start: 20110117
  53. HEXAMIDINE [Concomitant]
     Dosage: 100 ML, PRN
     Dates: start: 20110310, end: 20110401
  54. HEXAMIDINE [Concomitant]
     Dosage: 100 ML, BID
     Dates: start: 20110602, end: 20110608
  55. CONTRAST MEDIA [Concomitant]
     Indication: NUCLEAR MAGNETIC RESONANCE IMAGING
     Dosage: 20 ML, QD
     Route: 042
     Dates: start: 20101224, end: 20101224
  56. LIPID EMULSION [Concomitant]
     Dosage: 250 ML, QD
     Route: 042
     Dates: start: 20110404, end: 20110404
  57. MEK INHIBITOR (DIHYDROXYPROP-DIFLU-METHOXYPHEN-CYCLOPROPA-SULFAMI) [Suspect]
     Dosage: 50 MG, QD
     Route: 048
     Dates: start: 20110128, end: 20110128
  58. MEK INHIBITOR (DIHYDROXYPROP-DIFLU-METHOXYPHEN-CYCLOPROPA-SULFAMI) [Suspect]
     Dosage: 50 MG, BID
     Route: 048
     Dates: start: 20110402, end: 20110403
  59. SORAFENIB (RAF KINASE INHIBITOR) [Suspect]
     Dosage: 600 MG, QD (200 MG AM/400 MG PM)
     Route: 048
     Dates: start: 20110402, end: 20110403
  60. MYDRIN P [Concomitant]
     Dosage: 1 ML, QD
     Route: 061
     Dates: start: 20110607, end: 20110607
  61. METOCLOPRAMIDE [Concomitant]
     Dosage: 2.5 MG, TID
     Route: 048
     Dates: start: 20110318, end: 20110417
  62. HEXAMIDINE [Concomitant]
     Dosage: 100 ML, PRN
     Route: 048
     Dates: start: 20110207, end: 20110218
  63. HEXAMIDINE [Concomitant]
     Dosage: 100 ML, QD
     Dates: start: 20110512, end: 20110524
  64. NORVASC [Concomitant]
     Indication: HYPERTENSION
     Dosage: 5 MG, QD
     Route: 048
     Dates: start: 20110207
  65. MEGACE [Concomitant]
     Dosage: 10 ML, QD
     Route: 048
     Dates: start: 20110310, end: 20110316
  66. OPTIRAY 300 [Concomitant]
     Dosage: 100 ML, QD
     Route: 042
     Dates: start: 20110218, end: 20110218
  67. GASMOTIN [Concomitant]
     Indication: DECREASED APPETITE
     Dosage: 5 MG, TID
     Route: 048
     Dates: start: 20110310
  68. FLUORESCINE [Concomitant]
     Indication: ANGIOGRAM
     Dosage: 500 MG, QD
     Route: 042
     Dates: start: 20110607, end: 20110607
  69. TRIAMCINOLONE ACETONIDE [Concomitant]
     Indication: RETINAL VASCULAR THROMBOSIS
     Dosage: 40 MG, QD
     Route: 061
     Dates: start: 20110607, end: 20110607
  70. MEK INHIBITOR (DIHYDROXYPROP-DIFLU-METHOXYPHEN-CYCLOPROPA-SULFAMI) [Suspect]
     Dosage: 50 MG, QD
     Route: 048
     Dates: start: 20110207, end: 20110207
  71. MEK INHIBITOR (DIHYDROXYPROP-DIFLU-METHOXYPHEN-CYCLOPROPA-SULFAMI) [Suspect]
     Dosage: 50 MG, BID
     Route: 048
     Dates: start: 20110208, end: 20110216
  72. MEK INHIBITOR (DIHYDROXYPROP-DIFLU-METHOXYPHEN-CYCLOPROPA-SULFAMI) [Suspect]
     Dosage: 50 MG, BID
     Route: 048
     Dates: start: 20110219, end: 20110309
  73. MEK INHIBITOR (DIHYDROXYPROP-DIFLU-METHOXYPHEN-CYCLOPROPA-SULFAMI) [Suspect]
     Dosage: 50 MG, BID
     Route: 048
     Dates: start: 20110319, end: 20110331
  74. SORAFENIB (RAF KINASE INHIBITOR) [Suspect]
     Dosage: 400 MG, QD (PM)
     Route: 048
     Dates: start: 20110207, end: 20110207
  75. SORAFENIB (RAF KINASE INHIBITOR) [Suspect]
     Dosage: 600 MG, QD(200 MG AM/400 MG PM)
     Route: 048
     Dates: start: 20110208, end: 20110216
  76. SORAFENIB (RAF KINASE INHIBITOR) [Suspect]
     Dosage: 600 MG, QD
     Route: 048
     Dates: start: 20110422, end: 20110511
  77. SORAFENIB (RAF KINASE INHIBITOR) [Suspect]
     Dosage: 400 MG, QD (PM)
     Route: 048
     Dates: start: 20110512, end: 20110512
  78. MYDRIN P [Concomitant]
     Indication: MYDRIASIS
     Dosage: 10 ML, QD
     Dates: start: 20101224, end: 20101224
  79. MEGACE [Concomitant]
     Dosage: 10 ML, QD
     Route: 048
     Dates: start: 20110422, end: 20110428
  80. MEGACE [Concomitant]
     Dosage: 10 ML, QD
     Route: 048
     Dates: start: 20110602, end: 20110608
  81. CONTRAST MEDIA [Concomitant]
     Dosage: 20 ML, QD
     Route: 042
     Dates: start: 20110217, end: 20110217
  82. BACTROBAN [Concomitant]
     Dosage: 10 G, PRN
     Route: 061
     Dates: start: 20110404, end: 20110422
  83. UREA [Concomitant]
     Indication: EXCORIATION
     Dosage: 30 G, PRN
     Route: 061
     Dates: start: 20110404, end: 20110422
  84. TERBINAFINE HCL [Concomitant]
     Indication: TINEA PEDIS
     Dosage: 15 G QD
     Route: 061
     Dates: start: 20110512

REACTIONS (1)
  - RETINAL VASCULAR THROMBOSIS [None]
